FAERS Safety Report 13106937 (Version 2)
Quarter: 2017Q1

REPORT INFORMATION
  Report Type: Spontaneous
  Country: JP (occurrence: JP)
  Receive Date: 20170111
  Receipt Date: 20170117
  Transmission Date: 20170428
  Serious: Yes (Hospitalization)
  Sender: FDA-Public Use
  Company Number: JP-B.I. PHARMACEUTICALS,INC./RIDGEFIELD-2017-BI-001644

PATIENT
  Sex: Male

DRUGS (1)
  1. HARNAL [Suspect]
     Active Substance: TAMSULOSIN HYDROCHLORIDE
     Indication: PRODUCT USED FOR UNKNOWN INDICATION
     Dosage: DAILY DOSE: 0.2 MG, MORNING, TWICE DAILY BEFORE SLEEP
     Route: 048
     Dates: start: 201603

REACTIONS (3)
  - Dysuria [Unknown]
  - Intentional product misuse [Unknown]
  - Pneumonia [Unknown]

NARRATIVE: CASE EVENT DATE: 201603
